FAERS Safety Report 10865302 (Version 5)
Quarter: 2015Q2

REPORT INFORMATION
  Report Type: Spontaneous
  Country: JP (occurrence: JP)
  Receive Date: 20150224
  Receipt Date: 20150601
  Transmission Date: 20150821
  Serious: Yes (Hospitalization)
  Sender: FDA-Public Use
  Company Number: JP-ROCHE-1543347

PATIENT
  Age: 72 Year
  Sex: Male
  Weight: 56.9 kg

DRUGS (9)
  1. LUCENTIS [Suspect]
     Active Substance: RANIBIZUMAB
     Indication: AGE-RELATED MACULAR DEGENERATION
     Dosage: MOST RECENT DOSE IN DEC/2014.
     Route: 031
     Dates: start: 201410
  2. LUCENTIS [Suspect]
     Active Substance: RANIBIZUMAB
     Dosage: MOST RECENT DOSE
     Route: 031
     Dates: start: 201412
  3. LUCENTIS [Suspect]
     Active Substance: RANIBIZUMAB
     Route: 031
     Dates: start: 201411
  4. BAYASPIRIN [Concomitant]
     Active Substance: ASPIRIN
  5. OMEPRAZOLE. [Concomitant]
     Active Substance: OMEPRAZOLE
  6. DORNER [Concomitant]
     Active Substance: BERAPROST SODIUM
     Route: 065
     Dates: end: 20150201
  7. NICHISTATE [Concomitant]
     Active Substance: TICLOPIDINE
  8. AIMIX [Concomitant]
     Active Substance: AMLODIPINE BESYLATE\IRBESARTAN
     Route: 065
     Dates: end: 20150201
  9. ATORVASTATIN [Concomitant]
     Active Substance: ATORVASTATIN

REACTIONS (1)
  - Lacunar infarction [Recovering/Resolving]

NARRATIVE: CASE EVENT DATE: 20150201
